FAERS Safety Report 6469789-4 (Version None)
Quarter: 2009Q4

REPORT INFORMATION
  Report Type: 
  Country: None (occurrence: None)
  Receive Date: 20091203
  Receipt Date: 20080109
  Transmission Date: 20100525
  Serious: Yes (Hospitalization)
  Sender: FDA-Public Use
  Company Number: CA-ELI_LILLY_AND_COMPANY-CA200710006614

PATIENT
  Age: 75 Year
  Sex: Female

DRUGS (10)
  1. FORTEO [Suspect]
     Indication: OSTEOPOROSIS
     Dosage: 20 UG, DAILY (1/D)
     Route: 058
     Dates: start: 20070822, end: 20071119
  2. FORTEO [Suspect]
     Dosage: 20 UG, DAILY (1/D)
     Route: 058
     Dates: start: 20071124
  3. CARBOCAL D [Concomitant]
  4. FLOVENT [Concomitant]
     Route: 055
  5. VENTOLIN                                /SCH/ [Concomitant]
     Route: 055
  6. SEREVENT [Concomitant]
     Route: 055
  7. NICORETTE /01033302/ [Concomitant]
     Dosage: UNK, AS NEEDED
  8. AVELOX [Concomitant]
     Dosage: UNK, UNK
     Dates: start: 20071025, end: 20071027
  9. APO-PREDNISONE [Concomitant]
     Dosage: UNK, UNK
     Dates: start: 20071025, end: 20071027
  10. TYLENOL /USA/ [Concomitant]

REACTIONS (3)
  - BRONCHITIS CHRONIC [None]
  - FALL [None]
  - RIB FRACTURE [None]
